FAERS Safety Report 9913757 (Version 1)
Quarter: 2014Q1

REPORT INFORMATION
  Report Type: Spontaneous
  Country: US (occurrence: None)
  Receive Date: 20140218
  Receipt Date: 20140218
  Transmission Date: 20141002
  Serious: No
  Sender: FDA-Public Use
  Company Number: None

PATIENT
  Age: 78 Year
  Sex: Male
  Weight: 83.92 kg

DRUGS (1)
  1. LOVENOX [Suspect]
     Indication: ATRIAL FIBRILLATION
     Dosage: 90MG  BID  SQ?DAY #2 - INCIDENT
     Route: 058

REACTIONS (2)
  - Device malfunction [None]
  - Contusion [None]
